FAERS Safety Report 8811374 (Version 1)
Quarter: 2012Q4

REPORT INFORMATION
  Report Type: Spontaneous
  Country: US (occurrence: None)
  Receive Date: 20120921
  Receipt Date: 20120921
  Transmission Date: 20130627
  Serious: Yes (Hospitalization, Other)
  Sender: FDA-Public Use
  Company Number: ACO_31535_2012

PATIENT
  Age: 56 Year
  Sex: Female

DRUGS (1)
  1. AMPYRA [Suspect]
     Indication: DRUG USE FOR UNKNOWN INDICATION
     Dates: start: 2011, end: 2011

REACTIONS (8)
  - Craniocerebral injury [None]
  - Loss of consciousness [None]
  - Multiple sclerosis relapse [None]
  - Fall [None]
  - Periorbital contusion [None]
  - Head injury [None]
  - Reflexes abnormal [None]
  - Muscular weakness [None]
